FAERS Safety Report 5808748-9 (Version None)
Quarter: 2008Q3

REPORT INFORMATION
  Report Type: 
  Country: None (occurrence: None)
  Receive Date: 20080714
  Receipt Date: 20080710
  Transmission Date: 20090109
  Serious: Yes (Other)
  Sender: FDA-Public Use
  Company Number: A0736220A

PATIENT
  Weight: 119 kg

DRUGS (1)
  1. ALLI [Suspect]
     Indication: DRUG USE FOR UNKNOWN INDICATION

REACTIONS (4)
  - ASTHMA [None]
  - MALAISE [None]
  - RESPIRATORY TRACT CONGESTION [None]
  - WEIGHT DECREASED [None]
